FAERS Safety Report 22744441 (Version 8)
Quarter: 2023Q4

REPORT INFORMATION
  Report Type: Spontaneous
  Country: AT (occurrence: AT)
  Receive Date: 20230724
  Receipt Date: 20231221
  Transmission Date: 20240110
  Serious: Yes (Hospitalization, Other)
  Sender: FDA-Public Use
  Company Number: AT-ROCHE-3226138

PATIENT
  Age: 64 Year
  Sex: Female

DRUGS (56)
  1. TUKYSA [Suspect]
     Active Substance: TUCATINIB
     Indication: HER2 positive breast cancer
     Dosage: 300 MG, BID, AMOUNT PER ADMINISTRATION WAS CHANGED FROM 30 TO 300 MG
     Route: 048
     Dates: start: 20201120, end: 20210108
  2. TUKYSA [Suspect]
     Active Substance: TUCATINIB
     Dosage: 200 MG, BID
     Route: 048
     Dates: start: 20210509, end: 20210528
  3. TUKYSA [Suspect]
     Active Substance: TUCATINIB
     Dosage: 250 MG, BID
     Route: 048
     Dates: start: 20210108, end: 20210428
  4. PERTUZUMAB [Suspect]
     Active Substance: PERTUZUMAB
     Indication: HER2 positive breast cancer
     Dosage: UNK, MOST RECENT DOSE PRIOR TO AE
     Route: 042
     Dates: start: 20200103
  5. PERTUZUMAB [Suspect]
     Active Substance: PERTUZUMAB
     Dosage: 420 MG, ONCE EVERY 3 WK, MOST RECENT DOSE PRIOR TO AE 03/JAN/2020
     Route: 042
     Dates: start: 20190315
  6. PERTUZUMAB [Suspect]
     Active Substance: PERTUZUMAB
     Dosage: 420 MG, ONCE EVERY 3 WK
     Route: 042
     Dates: start: 20190403, end: 20200103
  7. PERTUZUMAB [Suspect]
     Active Substance: PERTUZUMAB
     Dosage: 840 MG, ONCE EVERY 3 WK
     Route: 042
     Dates: start: 20190315, end: 20190315
  8. LOPERAMIDE [Suspect]
     Active Substance: LOPERAMIDE
     Indication: Prophylaxis
     Dosage: 2 MG
     Route: 048
     Dates: start: 20190315
  9. CAPECITABINE [Suspect]
     Active Substance: CAPECITABINE
     Indication: HER2 positive breast cancer
     Dosage: 3000 MG, ONCE EVERY 3 WK,MOST RECENT DOSE PRIOR TO THE EVENT: 19/JAN/2021D1-14. Q21D AMOUNT PER ADMI
     Route: 048
     Dates: start: 20201121, end: 20201218
  10. CAPECITABINE [Suspect]
     Active Substance: CAPECITABINE
     Dosage: 2000 MG, ONCE EVERY 3 WK, MOST RECENT DOSE PRIOR TO THE EVENT: 19/JAN/2021D1-14.
     Route: 048
     Dates: start: 20210119, end: 20210522
  11. CAPECITABINE [Suspect]
     Active Substance: CAPECITABINE
     Dosage: 3500 MG, ONCE EVERY 3 WK,FREQUENCY: OTHERFREQUENCY: OTHER MOST RECENT DOSE PRIOR TO THE EVENT: 19/JA
     Route: 048
     Dates: start: 20201031, end: 20201120
  12. SACITUZUMAB GOVITECAN [Suspect]
     Active Substance: SACITUZUMAB GOVITECAN
     Indication: HER2 positive breast cancer
     Dosage: 10 MG, D1+D8, Q21D
     Route: 042
     Dates: start: 20221207, end: 20230105
  13. PERTUZUMAB\TRASTUZUMAB [Suspect]
     Active Substance: PERTUZUMAB\TRASTUZUMAB
     Indication: HER2 positive breast cancer
     Dosage: 600 MG, ONCE EVERY 3 WK
     Route: 058
     Dates: start: 20220727, end: 20220818
  14. TRASTUZUMAB [Suspect]
     Active Substance: TRASTUZUMAB
     Indication: HER2 positive breast cancer
     Dosage: 600 MG, ONCE EVERY 3 WK, MOST RECENT DOSE PRIOR TO AE, LAST ADMINISTRATION: 29-APR-2021
     Route: 042
     Dates: start: 20201021
  15. TRASTUZUMAB [Suspect]
     Active Substance: TRASTUZUMAB
     Dosage: 680 MILLIGRAM, Q3WK, SOLUTION FOR INFUSION INSTEAD OF SOLUTION FOR INJECTIONINTRAVENOUS USE INSTEAD
     Route: 042
     Dates: start: 20190315, end: 20190315
  16. TRASTUZUMAB [Suspect]
     Active Substance: TRASTUZUMAB
     Dosage: 510 MG, ONCE EVERY 3 WK
     Route: 042
     Dates: start: 20190315, end: 20200103
  17. TRASTUZUMAB [Suspect]
     Active Substance: TRASTUZUMAB
     Dosage: 510 MG, ONCE EVERY 3 WK
     Route: 042
     Dates: start: 20190403, end: 20200103
  18. ERIBULIN MESYLATE [Suspect]
     Active Substance: ERIBULIN MESYLATE
     Indication: HER2 positive breast cancer
     Dosage: 1.23 MG/M2, ONCE EVERY 3 WK, Q3WK, D1+D8. Q21D
     Route: 042
     Dates: start: 20230209, end: 20230322
  19. HYALURONIDASE (HUMAN RECOMBINANT)\TRASTUZUMAB [Suspect]
     Active Substance: HYALURONIDASE (HUMAN RECOMBINANT)\TRASTUZUMAB
     Indication: HER2 positive breast cancer
     Dosage: 600 MG, ONCE EVERY 3 WK
     Route: 065
  20. ENHERTU [Suspect]
     Active Substance: FAM-TRASTUZUMAB DERUXTECAN-NXKI
     Indication: HER2 positive breast cancer
     Dosage: 3.2 MG/KG, ONCE EVERY 3 WK
     Route: 042
     Dates: start: 20220302, end: 20220512
  21. ENHERTU [Suspect]
     Active Substance: FAM-TRASTUZUMAB DERUXTECAN-NXKI
     Dosage: 4.4 MG/KG, ONCE EVERY 3 WK, START OF THERAPY DATE: 18-JAN-2022 INSTEAD OF 17-JAN-2022
     Route: 042
     Dates: start: 20220118, end: 20220209
  22. ENHERTU [Suspect]
     Active Substance: FAM-TRASTUZUMAB DERUXTECAN-NXKI
     Dosage: 4.4 MG/KG, ONCE EVERY 3 WK
     Route: 042
     Dates: start: 20210721, end: 20210811
  23. ENHERTU [Suspect]
     Active Substance: FAM-TRASTUZUMAB DERUXTECAN-NXKI
     Dosage: 5.4 MG/KG, ONCE EVERY 3 WK
     Route: 042
     Dates: start: 20210628, end: 20210628
  24. ENHERTU [Suspect]
     Active Substance: FAM-TRASTUZUMAB DERUXTECAN-NXKI
     Dosage: 5.4 MG/KG, ONCE EVERY 3 WK
     Route: 042
     Dates: start: 20210901, end: 20211228
  25. ADO-TRASTUZUMAB EMTANSINE [Suspect]
     Active Substance: ADO-TRASTUZUMAB EMTANSINE
     Indication: HER2 positive breast cancer
     Dosage: 292 MG, ONCE EVERY 3 WK, MOST RECENT DOSE PRIOR TO AE 26/AUG/2020
     Route: 042
     Dates: start: 20200129
  26. DOXORUBICIN [Suspect]
     Active Substance: DOXORUBICIN
     Indication: HER2 positive breast cancer
     Dosage: 30 MG/M2, ONCE EVERY 3 WK
     Route: 048
     Dates: start: 20220727, end: 20220818
  27. VINORELBINE [Suspect]
     Active Substance: VINORELBINE TARTRATE
     Indication: HER2 positive breast cancer
     Dosage: 58 MG, ONCE EVERY 3 WK,AMOUNT PER ADMINISTRATION WAS CHANGED FROM 28 TO 58 MG
     Route: 042
     Dates: start: 20190918, end: 20200103
  28. VINORELBINE [Suspect]
     Active Substance: VINORELBINE TARTRATE
     Dosage: 58 MG, ONCE EVERY 3 WK
     Route: 042
     Dates: start: 20190315, end: 20190625
  29. ZOFRAN [Concomitant]
     Active Substance: ONDANSETRON HYDROCHLORIDE
     Indication: Prophylaxis
     Dosage: 125 MG, D1 AND D2 OF EACH CYCLE OF CAELYX
     Route: 048
     Dates: start: 20211207
  30. ZOFRAN [Concomitant]
     Active Substance: ONDANSETRON HYDROCHLORIDE
     Dosage: 8 MG
     Route: 048
     Dates: start: 20190315
  31. ZYPREXA [Concomitant]
     Active Substance: OLANZAPINE
     Indication: Nausea
     Dosage: UNK, D14
     Route: 048
     Dates: start: 20210721
  32. METOCLOPRAMIDE HYDROCHLORIDE [Concomitant]
     Active Substance: METOCLOPRAMIDE HYDROCHLORIDE
     Indication: Nausea
     Dosage: 10 MG
     Route: 048
     Dates: start: 20210708
  33. DIPHENHYDRAMINE [Concomitant]
     Active Substance: DIPHENHYDRAMINE
     Indication: Prophylaxis
     Dosage: 50 MG, DAY 1 OF EACH CYCLE OF SACITUZUMAB-GOV
     Route: 048
     Dates: start: 20221207, end: 20230105
  34. POLYETHYLENE GLYCOL 3350\POTASSIUM CHLORIDE\SODIUM BICARBONATE\SODIUM [Concomitant]
     Active Substance: POLYETHYLENE GLYCOL 3350\POTASSIUM CHLORIDE\SODIUM BICARBONATE\SODIUM CHLORIDE
     Indication: Prophylaxis
     Dosage: UNK, SACHET
     Route: 048
     Dates: start: 20210722
  35. DEXAMETHASONE [Concomitant]
     Active Substance: DEXAMETHASONE
     Indication: Prophylaxis
     Dosage: 12 MG, D1,2 AND 3 OF EACH CYCLE OF TDXT
     Route: 048
     Dates: start: 20210628, end: 20220514
  36. DEXAMETHASONE [Concomitant]
     Active Substance: DEXAMETHASONE
     Dosage: 12 MG, DAY 1 OF EACH CYCLE OF SACITUZUMAB-GOVIT
     Route: 048
     Dates: start: 20221207, end: 20230105
  37. DEXAMETHASONE [Concomitant]
     Active Substance: DEXAMETHASONE
     Dosage: 4 MG, D1,2 AND 3 OF EACH CYCLE OF TDXT
     Route: 048
     Dates: start: 20221208, end: 20230107
  38. DEXAMETHASONE [Concomitant]
     Active Substance: DEXAMETHASONE
     Dosage: 40 MG, DAY 1 OF EACH CYCLE OF SACITUZUMAB-GOVIT
     Route: 048
     Dates: start: 20230209
  39. ESOMEPRAZOLE [Concomitant]
     Active Substance: ESOMEPRAZOLE
     Indication: Abdominal pain upper
     Dosage: UNK
     Route: 065
     Dates: start: 20211215
  40. ESOMEPRAZOLE [Concomitant]
     Active Substance: ESOMEPRAZOLE
     Indication: Prophylaxis
     Dosage: 40 MG, QD
     Route: 048
     Dates: start: 20190726
  41. NADROPARIN CALCIUM [Concomitant]
     Active Substance: NADROPARIN CALCIUM
     Indication: Prophylaxis
     Dosage: UNK, 0.30 ML (MILLILITER; CM3)
     Route: 058
     Dates: start: 20190208
  42. SUCRALFATE [Concomitant]
     Active Substance: SUCRALFATE
     Indication: HER2 positive breast cancer
     Dosage: 1 G
     Route: 048
     Dates: start: 20190403
  43. SUCRALFATE [Concomitant]
     Active Substance: SUCRALFATE
     Indication: Prophylaxis
     Dosage: UNK
     Route: 065
  44. EMEND [Concomitant]
     Active Substance: APREPITANT
     Indication: Nausea
     Dosage: 125 MG, D1
     Route: 048
     Dates: start: 20210722
  45. EMEND [Concomitant]
     Active Substance: APREPITANT
     Dosage: 125 MILLIGRAM, D1-14
     Route: 048
     Dates: start: 20210721
  46. PREDNISOLONE SODIUM SUCCINATE [Concomitant]
     Active Substance: PREDNISOLONE SODIUM SUCCINATE
     Indication: Prophylaxis
     Dosage: 250 MG, D1 OF EACH CYCLE OF CAELYX
     Route: 042
     Dates: start: 20220727, end: 20220915
  47. APREPITANT [Concomitant]
     Active Substance: APREPITANT
     Indication: Product used for unknown indication
     Dosage: 125 MILLIGRAM, D1
     Route: 048
     Dates: start: 20210722
  48. APREPITANT [Concomitant]
     Active Substance: APREPITANT
     Dosage: 80 MILLIGRAM, D2+D3 OF EACH CYCLE OF TDXT
     Route: 048
     Dates: start: 20210722, end: 20220514
  49. APREPITANT [Concomitant]
     Active Substance: APREPITANT
     Dosage: 2.5 MILLIGRAM, D1-14
     Route: 048
     Dates: start: 20210721, end: 20220512
  50. APREPITANT [Concomitant]
     Active Substance: APREPITANT
     Dosage: 2.5 MILLIGRAM, D1-14
     Route: 048
     Dates: start: 20210721
  51. AMOXICILLIN\CLAVULANATE POTASSIUM [Concomitant]
     Active Substance: AMOXICILLIN\CLAVULANATE POTASSIUM
     Indication: Product used for unknown indication
     Dosage: 1 G, BID,16 OCT 2019 } EXANTHEMA AREA OF CLAVICULA
     Route: 048
     Dates: start: 20191030, end: 20191107
  52. ONDANSETRON [Concomitant]
     Active Substance: ONDANSETRON
     Indication: Prophylaxis
     Dosage: 8 MG
     Route: 048
     Dates: start: 20190315
  53. ONDANSETRON [Concomitant]
     Active Substance: ONDANSETRON
     Dosage: 16 MG, D1 AND D2 OF EACH CYCLE OF CAELYX
     Route: 048
     Dates: start: 20221207, end: 20230105
  54. ONDANSETRON [Concomitant]
     Active Substance: ONDANSETRON
     Dosage: 8 MG
     Route: 048
     Dates: start: 20221208, end: 20230107
  55. ONDANSETRON [Concomitant]
     Active Substance: ONDANSETRON
     Dosage: 16 MG
     Route: 048
     Dates: start: 20230209
  56. ACETAMINOPHEN [Concomitant]
     Active Substance: ACETAMINOPHEN
     Indication: Prophylaxis
     Dosage: 1000 MG, DAY 1 OF EACH CYCLE OF SACITUZUMAB-GOV
     Route: 065
     Dates: start: 20221207, end: 20230105

REACTIONS (2)
  - Pneumothorax [Recovered/Resolved with Sequelae]
  - Pneumonia [Not Recovered/Not Resolved]

NARRATIVE: CASE EVENT DATE: 20221115
